FAERS Safety Report 21008398 (Version 2)
Quarter: 2022Q2

REPORT INFORMATION
  Report Type: Report from Study
  Country: US (occurrence: None)
  Receive Date: 20220627
  Receipt Date: 20220628
  Transmission Date: 20220721
  Serious: Yes (Death)
  Sender: FDA-Public Use
  Company Number: 2022A232452

PATIENT

DRUGS (1)
  1. TAGRISSO [Suspect]
     Active Substance: OSIMERTINIB
     Route: 048

REACTIONS (5)
  - Death [Fatal]
  - Disease progression [Unknown]
  - Alopecia [Unknown]
  - Nail disorder [Unknown]
  - Decreased appetite [Unknown]
